FAERS Safety Report 5144170-9 (Version None)
Quarter: 2006Q4

REPORT INFORMATION
  Report Type: 
  Country: None (occurrence: None)
  Receive Date: 20061106
  Receipt Date: 20060904
  Transmission Date: 20070319
  Serious: Yes (Hospitalization)
  Sender: FDA-Public Use
  Company Number: JP-ROCHE-461949

PATIENT
  Age: 67 Year
  Sex: Female

DRUGS (9)
  1. LUPRAC [Suspect]
     Indication: DRUG USE FOR UNKNOWN INDICATION
     Route: 048
     Dates: start: 20060722, end: 20060725
  2. LASIX [Suspect]
     Indication: DRUG USE FOR UNKNOWN INDICATION
     Route: 065
  3. LANIRAPID [Concomitant]
     Dates: end: 20060725
  4. LOCHOL [Concomitant]
     Dates: end: 20060725
  5. URINORM [Concomitant]
     Dates: end: 20060725
  6. ACETAMINOPHEN [Concomitant]
     Dates: end: 20060725
  7. ALOSENN [Concomitant]
     Dates: end: 20060725
  8. PURSENNID [Concomitant]
     Dates: end: 20060725
  9. WARFARIN SODIUM [Concomitant]

REACTIONS (1)
  - TOXIC EPIDERMAL NECROLYSIS [None]
